FAERS Safety Report 9245470 (Version 1)
Quarter: 2013Q1

REPORT INFORMATION
  Report Type: Spontaneous
  Country: US (occurrence: None)
  Receive Date: 20130305
  Receipt Date: 20130305
  Transmission Date: 20140127
  Serious: Yes (Other)
  Sender: FDA-Public Use
  Company Number: 163-21880-12060107

PATIENT
  Age: 75 Year
  Sex: Female
  Weight: 92.99 kg

DRUGS (5)
  1. REVLIMID [Suspect]
     Indication: PLASMA CELL MYELOMA
     Dosage: 5MG, 1 IN 1 D, PO
     Route: 048
     Dates: start: 201110, end: 20111121
  2. DILTIAZEM [Concomitant]
     Dates: start: 200202
  3. ZANTAC (RANITIDINE HYDROCHLORIDE) [Concomitant]
     Dates: start: 200210
  4. COMPAZINE (PROCHLORPERAZINE EDISYLATE) [Concomitant]
     Dates: start: 201203
  5. ASPIRIN (ACETYLSALICYLIC ACID) [Concomitant]

REACTIONS (2)
  - Deep vein thrombosis [None]
  - Full blood count decreased [None]
